FAERS Safety Report 5664735-5 (Version None)
Quarter: 2008Q1

REPORT INFORMATION
  Report Type: 
  Country: None (occurrence: None)
  Receive Date: 20080314
  Receipt Date: 20080306
  Transmission Date: 20080703
  Serious: Yes (Other)
  Sender: FDA-Public Use
  Company Number: US-ASTRAZENECA-2008UW05002

PATIENT
  Sex: Female

DRUGS (2)
  1. SYMBICORT [Suspect]
     Dosage: 160/4.5 UG TWO INHALATIONS BID
     Route: 055
  2. BLOOD PRESSURE MEDICATIONS [Concomitant]

REACTIONS (1)
  - WEIGHT INCREASED [None]
